FAERS Safety Report 10990961 (Version 1)
Quarter: 2015Q2

REPORT INFORMATION
  Report Type: Spontaneous
  Country: FR (occurrence: FR)
  Receive Date: 20150406
  Receipt Date: 20150406
  Transmission Date: 20150821
  Serious: Yes (Life-Threatening, Hospitalization, Other)
  Sender: FDA-Public Use
  Company Number: FR-ELI_LILLY_AND_COMPANY-FR201503009664

PATIENT
  Age: 36 Year
  Sex: Male

DRUGS (2)
  1. ZYPREXA [Suspect]
     Active Substance: OLANZAPINE
     Indication: PRODUCT USED FOR UNKNOWN INDICATION
     Dosage: 10 MG, UNKNOWN
     Route: 065
  2. ZYPREXA [Suspect]
     Active Substance: OLANZAPINE
     Dosage: 10 MG, OTHER
     Route: 048
     Dates: start: 20150126, end: 20150126

REACTIONS (14)
  - Negative thoughts [Unknown]
  - Poisoning deliberate [Recovering/Resolving]
  - Aspartate aminotransferase increased [Unknown]
  - Intentional overdose [Recovering/Resolving]
  - Suicidal ideation [Unknown]
  - Alanine aminotransferase increased [Unknown]
  - Hypoglycaemia [Unknown]
  - Sinus tachycardia [Unknown]
  - Alcohol abuse [Unknown]
  - Coma [Recovering/Resolving]
  - Haemoglobin increased [Unknown]
  - Mean cell volume increased [Unknown]
  - Gamma-glutamyltransferase increased [Unknown]
  - Somnolence [Unknown]

NARRATIVE: CASE EVENT DATE: 20150126
